FAERS Safety Report 16284943 (Version 2)
Quarter: 2019Q2

REPORT INFORMATION
  Report Type: Spontaneous
  Country: US (occurrence: US)
  Receive Date: 20190508
  Receipt Date: 20190607
  Transmission Date: 20190711
  Serious: Yes (Hospitalization)
  Sender: FDA-Public Use
  Company Number: US-HORIZON-ACT-0125-2019

PATIENT
  Age: 13 Year
  Sex: Male

DRUGS (6)
  1. LYSINE [Concomitant]
     Active Substance: LYSINE
  2. ACTIMMUNE [Suspect]
     Active Substance: INTERFERON GAMMA-1B
     Indication: NEUTROPHIL FUNCTION DISORDER
     Dosage: 50 MCG (0.25 ML) EVERY MONDAY, WEDNESDAY AND FRIDAY
     Dates: start: 20170622
  3. IRON FORMULA [Concomitant]
  4. OMEGA 3 [Concomitant]
     Active Substance: OMEGA-3 FATTY ACIDS
  5. ITRACONAZOLE. [Concomitant]
     Active Substance: ITRACONAZOLE
  6. BACTRIM [Concomitant]
     Active Substance: SULFAMETHOXAZOLE\TRIMETHOPRIM

REACTIONS (1)
  - Fungal infection [Not Recovered/Not Resolved]
